FAERS Safety Report 20014053 (Version 1)
Quarter: 2021Q4

REPORT INFORMATION
  Report Type: Spontaneous
  Country: US (occurrence: US)
  Receive Date: 20211029
  Receipt Date: 20211029
  Transmission Date: 20220303
  Serious: No
  Sender: FDA-Public Use
  Company Number: US-HORIZON THERAPEUTICS-HZN-2021-005894

PATIENT
  Age: 48 Year
  Sex: Female
  Weight: 58.96 kg

DRUGS (9)
  1. TEPEZZA [Suspect]
     Active Substance: TEPROTUMUMAB-TRBW
     Indication: Endocrine ophthalmopathy
     Dosage: 1180 MG, EVERY 3 WEEKS
     Route: 042
     Dates: start: 20210525, end: 20210820
  2. TEPEZZA [Suspect]
     Active Substance: TEPROTUMUMAB-TRBW
     Indication: Basedow^s disease
     Dosage: 590 MG
     Route: 042
     Dates: start: 20210525, end: 20210820
  3. TEPEZZA [Suspect]
     Active Substance: TEPROTUMUMAB-TRBW
     Dosage: 1180 MG, EVERY 3 WEEKS
     Route: 042
  4. TEPEZZA [Suspect]
     Active Substance: TEPROTUMUMAB-TRBW
     Dosage: 1180 MG, EVERY 3 WEEKS
     Route: 042
     Dates: start: 20210729
  5. SODIUM CHLORIDE [Concomitant]
     Active Substance: SODIUM CHLORIDE
     Indication: Product used for unknown indication
     Dosage: UNK
     Route: 065
  6. SOLU-MEDROL [Concomitant]
     Active Substance: METHYLPREDNISOLONE SODIUM SUCCINATE
     Indication: Product used for unknown indication
     Dosage: 125 MG
     Route: 042
     Dates: start: 20210525, end: 20210820
  7. DIPHENHYDRAMINE HYDROCHLORIDE [Concomitant]
     Active Substance: DIPHENHYDRAMINE HYDROCHLORIDE
     Indication: Product used for unknown indication
     Dosage: 50 MG, AS NEEDED
     Route: 042
     Dates: start: 20210525, end: 20210820
  8. EPINEPHRINE [Concomitant]
     Active Substance: EPINEPHRINE
     Indication: Product used for unknown indication
     Dosage: 0.3 MG, AS NEEDED
     Route: 030
     Dates: start: 20210525, end: 20210820
  9. SODIUM CHLORIDE [Concomitant]
     Active Substance: SODIUM CHLORIDE
     Dosage: 1 UNK
     Route: 042
     Dates: start: 20210525, end: 20210820

REACTIONS (2)
  - Migraine [Unknown]
  - Tinnitus [Unknown]

NARRATIVE: CASE EVENT DATE: 20210813
